FAERS Safety Report 25538008 (Version 2)
Quarter: 2025Q3

REPORT INFORMATION
  Report Type: Spontaneous
  Country: MX (occurrence: MX)
  Receive Date: 20250710
  Receipt Date: 20250809
  Transmission Date: 20251021
  Serious: Yes (Other)
  Sender: ALEXION PHARMACEUTICALS
  Company Number: MX-AstraZeneca-CH-00904628A

PATIENT
  Sex: Male
  Weight: 85 kg

DRUGS (8)
  1. BUDESONIDE\FORMOTEROL\GLYCOPYRRONIUM [Suspect]
     Active Substance: BUDESONIDE\FORMOTEROL\GLYCOPYRRONIUM
     Indication: Pneumonia
     Dosage: 2 DOSAGE FORM, Q12H
     Dates: start: 20250702
  2. BUDESONIDE\FORMOTEROL\GLYCOPYRRONIUM [Suspect]
     Active Substance: BUDESONIDE\FORMOTEROL\GLYCOPYRRONIUM
     Dosage: 1 DOSAGE FORM, Q12H
  3. APIXABAN [Concomitant]
     Active Substance: APIXABAN
     Indication: Arrhythmia
     Dosage: 2.5 MILLIGRAM, QD
     Route: 065
     Dates: start: 2020
  4. PREDNISONE [Concomitant]
     Active Substance: PREDNISONE
     Indication: Adrenal insufficiency
     Dosage: 1 DOSAGE FORM, Q8H
     Route: 065
     Dates: start: 202412
  5. LINAGLIPTIN [Concomitant]
     Active Substance: LINAGLIPTIN
     Indication: Diabetes mellitus
     Dosage: 1 DOSAGE FORM, QD
     Route: 065
     Dates: start: 2020
  6. MIRTAZAPINE [Concomitant]
     Active Substance: MIRTAZAPINE
     Indication: Depression
     Dosage: 0.5 DOSAGE FORM, QD
     Route: 065
     Dates: start: 2021
  7. MIRTAZAPINE [Concomitant]
     Active Substance: MIRTAZAPINE
     Indication: Anxiety
  8. FLUDROCORTISONE [Concomitant]
     Active Substance: FLUDROCORTISONE
     Indication: Blood sodium abnormal
     Dosage: 1 DOSAGE FORM, QD
     Route: 065
     Dates: start: 202501

REACTIONS (5)
  - Dyskinesia [Unknown]
  - Muscle spasms [Unknown]
  - Disorientation [Unknown]
  - Headache [Unknown]
  - Pyrexia [Unknown]
